FAERS Safety Report 8604953-7 (Version None)
Quarter: 2012Q3

REPORT INFORMATION
  Report Type: 
  Country: None (occurrence: None)
  Receive Date: 20120820
  Receipt Date: 20120810
  Transmission Date: 20120928
  Serious: Yes (Other)
  Sender: FDA-Public Use
  Company Number: AU-PFIZER INC-2012201050

PATIENT
  Age: 76 Year
  Sex: Male

DRUGS (6)
  1. AMIODARONE HCL [Suspect]
     Indication: ATRIAL FIBRILLATION
     Dosage: 1 GRAM, DAILY
     Route: 048
  2. CEFAZOLIN SODIUM [Concomitant]
     Dosage: UNK
  3. ATORVASTATIN [Concomitant]
     Dosage: UNK
  4. WARFARIN SODIUM [Concomitant]
     Dosage: UNK
  5. METFORMIN HYDROCHLORIDE [Concomitant]
     Dosage: UNK
  6. METOPROLOL SUCCINATE [Concomitant]
     Dosage: UNK

REACTIONS (2)
  - JAUNDICE [None]
  - LIVER FUNCTION TEST ABNORMAL [None]
